FAERS Safety Report 8286555-8 (Version None)
Quarter: 2012Q2

REPORT INFORMATION
  Report Type: 
  Country: None (occurrence: None)
  Receive Date: 20120411
  Receipt Date: 20120328
  Transmission Date: 20120825
  Serious: Yes (Death)
  Sender: FDA-Public Use
  Company Number: US-2012-10361

PATIENT
  Age: 1 Year

DRUGS (4)
  1. CYCLOPHOSPHAMIDE [Concomitant]
  2. THIOTEPA [Concomitant]
  3. ANTI-THYMOCYTE GLOBULIN NOS [Concomitant]
  4. BUSULFAN [Suspect]
     Indication: BONE MARROW CONDITIONING REGIMEN
     Dosage: 16 MG/KG, DAILY DOSE,

REACTIONS (4)
  - SEPSIS [None]
  - SURGICAL PROCEDURE REPEATED [None]
  - STEM CELL TRANSPLANT [None]
  - TRANSPLANT REJECTION [None]
